FAERS Safety Report 18197587 (Version 1)
Quarter: 2020Q3

REPORT INFORMATION
  Report Type: Other
  Country: JP (occurrence: JP)
  Receive Date: 20200826
  Receipt Date: 20200826
  Transmission Date: 20201103
  Serious: Yes (Other)
  Sender: FDA-Public Use
  Company Number: JP-ROCHE-2663177

PATIENT
  Sex: Female

DRUGS (8)
  1. CARBOPLATIN. [Suspect]
     Active Substance: CARBOPLATIN
     Indication: OVARIAN CANCER RECURRENT
     Dosage: AREA UNDER THE CURVE (AUC)= 6 MG/ML/MIN, DAY 1
     Route: 042
  2. BEVACIZUMAB. [Suspect]
     Active Substance: BEVACIZUMAB
     Indication: MALIGNANT PERITONEAL NEOPLASM
  3. BEVACIZUMAB. [Suspect]
     Active Substance: BEVACIZUMAB
     Indication: FALLOPIAN TUBE CANCER
  4. PEGYLATED LIPOSOMAL DOXORUBICIN HYDROCHLORIDE [Suspect]
     Active Substance: DOXORUBICIN HYDROCHLORIDE
     Indication: OVARIAN CANCER RECURRENT
     Dosage: DAYS 1 AND 15
     Route: 042
  5. TOPOTECAN [Suspect]
     Active Substance: TOPOTECAN HYDROCHLORIDE
     Indication: OVARIAN CANCER RECURRENT
     Dosage: DAYS 1?5
     Route: 042
  6. PACLITAXEL. [Suspect]
     Active Substance: PACLITAXEL
     Indication: OVARIAN CANCER RECURRENT
     Dosage: DAY 1
     Route: 042
  7. BEVACIZUMAB. [Suspect]
     Active Substance: BEVACIZUMAB
     Indication: OVARIAN CANCER RECURRENT
     Dosage: 15 MG/BODY, ON DAY 1?MAINTENANCE THERAPY
     Route: 042
  8. DOCETAXEL. [Suspect]
     Active Substance: DOCETAXEL
     Indication: OVARIAN CANCER RECURRENT
     Dosage: DAY 1
     Route: 042

REACTIONS (15)
  - Thrombocytopenia [Unknown]
  - Biliary fistula [Unknown]
  - Ileus [Unknown]
  - Neutropenia [Unknown]
  - Proteinuria [Unknown]
  - Hypersensitivity [Unknown]
  - Leukopenia [Unknown]
  - Embolism [Unknown]
  - Hypertension [Unknown]
  - Infection [Unknown]
  - Anaemia [Unknown]
  - Stomatitis [Unknown]
  - Nephrotic syndrome [Unknown]
  - Febrile neutropenia [Unknown]
  - Haemorrhage [Unknown]
